FAERS Safety Report 19750601 (Version 4)
Quarter: 2021Q4

REPORT INFORMATION
  Report Type: Report from Study
  Country: CA (occurrence: CA)
  Receive Date: 20210826
  Receipt Date: 20211028
  Transmission Date: 20220303
  Serious: Yes (Hospitalization)
  Sender: FDA-Public Use
  Company Number: CA-JNJFOC-20210849921

PATIENT
  Age: 16 Year
  Sex: Male
  Weight: 48 kg

DRUGS (2)
  1. REMICADE [Suspect]
     Active Substance: INFLIXIMAB
     Indication: Colitis ulcerative
     Dosage: ON 23-MAR-2021 THE PATIENT RECEIVED DOSE
     Route: 042
     Dates: start: 20210316
  2. REMICADE [Suspect]
     Active Substance: INFLIXIMAB
     Dosage: ON 25-AUG-2021, PATIENT RECEIVED INFLIXIMAB INFUSION OF 700 MG DOSE. ON 07-SEP-2021, PATIENT RECEIVE
     Route: 042
     Dates: start: 2021

REACTIONS (6)
  - Colitis ulcerative [Unknown]
  - Cytomegalovirus infection [Not Recovered/Not Resolved]
  - Drug level decreased [Unknown]
  - Drug specific antibody present [Unknown]
  - Off label use [Unknown]
  - Extra dose administered [Unknown]

NARRATIVE: CASE EVENT DATE: 20210101
